FAERS Safety Report 18649879 (Version 1)
Quarter: 2020Q4

REPORT INFORMATION
  Report Type: Spontaneous
  Country: JP (occurrence: JP)
  Receive Date: 20201222
  Receipt Date: 20201222
  Transmission Date: 20210114
  Serious: Yes (Other)
  Sender: FDA-Public Use
  Company Number: JP-GLAXOSMITHKLINE-JP2020GSK249437

PATIENT
  Age: 21 Year
  Sex: Female

DRUGS (8)
  1. PREDNISOLONE. [Suspect]
     Active Substance: PREDNISOLONE
     Indication: IMMUNE THROMBOCYTOPENIA
     Dosage: UNK
  2. EPOPROSTENOL. [Suspect]
     Active Substance: EPOPROSTENOL
     Indication: PULMONARY ARTERIAL HYPERTENSION
     Dosage: 90.7 MG/KG/MIN
     Route: 042
  3. MACITENTAN [Concomitant]
     Active Substance: MACITENTAN
     Indication: PULMONARY ARTERIAL HYPERTENSION
     Dosage: UNK
  4. TADALAFIL. [Concomitant]
     Active Substance: TADALAFIL
     Indication: PULMONARY ARTERIAL HYPERTENSION
     Dosage: UNK
  5. TREPROSTINIL. [Interacting]
     Active Substance: TREPROSTINIL
     Indication: PULMONARY ARTERIAL HYPERTENSION
     Dosage: 195 NG/KG/MIN
  6. TREPROSTINIL. [Interacting]
     Active Substance: TREPROSTINIL
     Dosage: 204 NG/KG/MIN
  7. AMBRISENTAN [Concomitant]
     Active Substance: AMBRISENTAN
     Indication: PULMONARY ARTERIAL HYPERTENSION
     Dosage: UNK
  8. SILDENAFIL. [Concomitant]
     Active Substance: SILDENAFIL
     Indication: PULMONARY ARTERIAL HYPERTENSION
     Dosage: UNK

REACTIONS (9)
  - Thrombocytopenia [Recovered/Resolved]
  - Blood immunoglobulin G increased [Recovered/Resolved]
  - Thrombotic microangiopathy [Unknown]
  - Megakaryocytes increased [Recovered/Resolved]
  - Splenomegaly [Unknown]
  - Drug interaction [Unknown]
  - Right ventricular failure [Recovered/Resolved]
  - Platelet aggregation increased [Unknown]
  - Drug ineffective [Recovered/Resolved]
